FAERS Safety Report 5507736-X (Version None)
Quarter: 2007Q4

REPORT INFORMATION
  Report Type: 
  Country: None (occurrence: None)
  Receive Date: 20071105
  Receipt Date: 20071105
  Transmission Date: 20080405
  Serious: Yes (Death)
  Sender: FDA-Public Use
  Company Number: None

PATIENT
  Sex: Male
  Weight: 43 kg

DRUGS (1)
  1. IMATINIB, 100MG TABLETS, NOVARTIS [Suspect]
     Indication: PULMONARY HYPERTENSION
     Dosage: 350MG DAILY PO
     Route: 048
     Dates: start: 20071005, end: 20071101

REACTIONS (8)
  - CARDIO-RESPIRATORY ARREST [None]
  - EPISTAXIS [None]
  - MALAISE [None]
  - NAUSEA [None]
  - NO THERAPEUTIC RESPONSE [None]
  - PHARYNGOLARYNGEAL PAIN [None]
  - PYREXIA [None]
  - VOMITING [None]
